FAERS Safety Report 6342307-7 (Version None)
Quarter: 2009Q3

REPORT INFORMATION
  Report Type: 
  Country: None (occurrence: None)
  Receive Date: 20090907
  Receipt Date: 20080227
  Transmission Date: 20100115
  Serious: Yes (Other)
  Sender: FDA-Public Use
  Company Number: US-ASTRAZENECA-2008UW01185

PATIENT
  Age: 28 Year
  Sex: Female
  Weight: 134.9 kg

DRUGS (9)
  1. SEROQUEL [Suspect]
     Indication: BIPOLAR DISORDER
     Route: 048
     Dates: start: 20010201, end: 20071101
  2. SEROQUEL [Suspect]
     Indication: SCHIZOPHRENIA
     Route: 048
     Dates: start: 20010201, end: 20071101
  3. SEROQUEL [Suspect]
     Dosage: 200-400 MG DAILY
     Route: 048
     Dates: start: 20050708
  4. SEROQUEL [Suspect]
     Dosage: 200-400 MG DAILY
     Route: 048
     Dates: start: 20050708
  5. SEROQUEL [Suspect]
     Route: 048
     Dates: start: 20060822
  6. SEROQUEL [Suspect]
     Route: 048
     Dates: start: 20060822
  7. NEURONTIN [Concomitant]
     Indication: NEUROPATHY PERIPHERAL
     Dates: start: 20070914
  8. GLUCOPHAGE [Concomitant]
     Dates: start: 20070705
  9. ZESTORETIC [Concomitant]
     Dosage: 20/12.5 DAILY
     Dates: start: 20070705

REACTIONS (7)
  - AFFECTIVE DISORDER [None]
  - DIABETES MELLITUS [None]
  - DIABETES MELLITUS INADEQUATE CONTROL [None]
  - NEUROPATHY PERIPHERAL [None]
  - SEDATION [None]
  - SOMNOLENCE [None]
  - TYPE 2 DIABETES MELLITUS [None]
